FAERS Safety Report 6759821-2 (Version None)
Quarter: 2010Q2

REPORT INFORMATION
  Report Type: 
  Country: None (occurrence: None)
  Receive Date: 20100524
  Receipt Date: 20100412
  Transmission Date: 20101027
  Serious: No
  Sender: FDA-Public Use
  Company Number: 010180

PATIENT
  Weight: 42.6 kg

DRUGS (4)
  1. CIMZIA [Suspect]
     Indication: CROHN'S DISEASE
     Dosage: (SUBCUTANEOUS)
     Route: 058
     Dates: start: 20100315
  2. PREDNISONE [Concomitant]
  3. PAROXETINE HCL [Concomitant]
  4. MULTI-VITAMINS [Concomitant]

REACTIONS (1)
  - INJECTION SITE PAIN [None]
